FAERS Safety Report 7365837-8 (Version None)
Quarter: 2011Q1

REPORT INFORMATION
  Report Type: 
  Country: None (occurrence: None)
  Receive Date: 20110316
  Receipt Date: 20110316
  Transmission Date: 20110831
  Serious: Yes (Life-Threatening, Other)
  Sender: FDA-Public Use
  Company Number: None

PATIENT
  Age: 54 Year
  Sex: Male
  Weight: 95.2554 kg

DRUGS (1)
  1. VISTARIL [Suspect]
     Indication: MULTIPLE ALLERGIES
     Dosage: 1,OR 2 AT BEDTIME
     Dates: start: 20110216, end: 20110218

REACTIONS (5)
  - MOVEMENT DISORDER [None]
  - PAROSMIA [None]
  - RESPIRATORY RATE DECREASED [None]
  - FEAR [None]
  - SKIN DISCOLOURATION [None]
